FAERS Safety Report 8933865 (Version 1)
Quarter: 2012Q4

REPORT INFORMATION
  Report Type: 
  Country: US (occurrence: US)
  Receive Date: 20121129
  Receipt Date: 20121129
  Transmission Date: 20130627
  Serious: Yes (Other)
  Sender: FDA-Public Use
  Company Number: US-BAYER-2012-123806

PATIENT
  Age: 30 Year
  Sex: Female

DRUGS (1)
  1. AVELOX [Suspect]
     Indication: SKIN INFECTION
     Dosage: 400 mg, ONCE
     Route: 048
     Dates: start: 20121103, end: 20121103

REACTIONS (5)
  - Rash pruritic [Recovered/Resolved]
  - Lip swelling [Recovered/Resolved]
  - Throat tightness [Recovered/Resolved]
  - Loss of consciousness [Recovered/Resolved]
  - Wheezing [Recovered/Resolved]
